FAERS Safety Report 6550210-2 (Version None)
Quarter: 2010Q1

REPORT INFORMATION
  Report Type: 
  Country: None (occurrence: None)
  Receive Date: 20100125
  Receipt Date: 20100112
  Transmission Date: 20100710
  Serious: Yes (Other)
  Sender: FDA-Public Use
  Company Number: US-ELI_LILLY_AND_COMPANY-US201001003740

PATIENT
  Sex: Female

DRUGS (14)
  1. EVISTA [Suspect]
     Indication: OSTEOPOROSIS
     Dosage: 60 MG, UNK
     Dates: end: 20091101
  2. FORTEO [Suspect]
     Indication: OSTEOPOROSIS
     Dosage: 20 UG, DAILY (1/D)
     Dates: start: 20091027
  3. LEVOTHYROXINE SODIUM [Concomitant]
     Dosage: 0.125 MG, DAILY (1/D)
  4. CELEBREX [Concomitant]
     Dosage: 200 MG, DAILY (1/D)
  5. PRILOSEC [Concomitant]
     Dosage: 40 MG, DAILY (1/D)
  6. MULTI-VITAMIN [Concomitant]
     Dosage: UNK, DAILY (1/D)
  7. ASPIRIN [Concomitant]
     Dosage: 81 MG, DAILY (1/D)
  8. CALCIUM W/VITAMIN D NOS [Concomitant]
     Dosage: UNK, 3/D
  9. MAGNESIUM [Concomitant]
     Dosage: UNK, DAILY (1/D)
  10. ZINC [Concomitant]
     Dosage: UNK, DAILY (1/D)
  11. VITAMIN B COMPLEX CAP [Concomitant]
     Dosage: UNK, DAILY (1/D)
  12. TRAMADOL [Concomitant]
     Indication: PAIN
     Dosage: 50 MG, AS NEEDED
  13. TYLENOL /SCH/ [Concomitant]
     Indication: PAIN
     Dosage: 500 MG, AS NEEDED
  14. GLUCOSAMINE/CHONDROITIN            /01625901/ [Concomitant]

REACTIONS (3)
  - FRACTURED SACRUM [None]
  - HIP FRACTURE [None]
  - PAIN [None]
